FAERS Safety Report 25532927 (Version 1)
Quarter: 2025Q3

REPORT INFORMATION
  Report Type: Spontaneous
  Country: EU (occurrence: EU)
  Receive Date: 20250709
  Receipt Date: 20250709
  Transmission Date: 20251021
  Serious: Yes (Hospitalization)
  Sender: TEVA
  Company Number: None

PATIENT
  Age: 59 Year
  Sex: Male

DRUGS (4)
  1. AZITHROMYCIN [Suspect]
     Active Substance: AZITHROMYCIN
     Indication: Prophylaxis
     Dosage: (1 ENVELOPE) L, X AND V; AZITHROMYCIN (7019A)
     Route: 048
     Dates: start: 20250205, end: 20250404
  2. SERTRALINE [Concomitant]
     Active Substance: SERTRALINE HYDROCHLORIDE
     Indication: Depression
     Dosage: (1 COMP) BREAKFAST
     Route: 048
     Dates: start: 20250306, end: 20250311
  3. CRESEMBA [Concomitant]
     Active Substance: ISAVUCONAZONIUM SULFATE
     Indication: Lung opacity
     Dosage: 200 MILLIGRAM (2 CAPSULE) EXP 24H
     Route: 048
     Dates: start: 20250204, end: 20250411
  4. PITAVASTATIN [Concomitant]
     Active Substance: PITAVASTATIN
     Indication: Dyslipidaemia
     Dosage: 1 TABLET DINNER
     Route: 048
     Dates: start: 20250204, end: 20250404

REACTIONS (2)
  - Hepatitis cholestatic [Recovered/Resolved]
  - Condition aggravated [Recovered/Resolved]

NARRATIVE: CASE EVENT DATE: 20250404
